FAERS Safety Report 18412677 (Version 1)
Quarter: 2020Q4

REPORT INFORMATION
  Report Type: Spontaneous
  Country: US (occurrence: US)
  Receive Date: 20201022
  Receipt Date: 20201022
  Transmission Date: 20210114
  Serious: Yes (Other)
  Sender: FDA-Public Use
  Company Number: US-GW PHARMA-202010USGW03577

PATIENT

DRUGS (2)
  1. EPIDIOLEX [Suspect]
     Active Substance: CANNABIDIOL
     Indication: IDIOPATHIC GENERALISED EPILEPSY
     Dosage: 15.3 MG/KG/DAY, 130 MILLIGRAM, BID
     Route: 048
     Dates: start: 201908, end: 202010
  2. EPIDIOLEX [Suspect]
     Active Substance: CANNABIDIOL
     Dosage: INCREASED DOSE FOR HIS WEIGHT, UNK
     Route: 048
     Dates: start: 202010

REACTIONS (2)
  - Seizure [Recovered/Resolved]
  - Product use in unapproved indication [Unknown]

NARRATIVE: CASE EVENT DATE: 20201011
